FAERS Safety Report 18664018 (Version 1)
Quarter: 2020Q4

REPORT INFORMATION
  Report Type: Spontaneous
  Country: DE (occurrence: DE)
  Receive Date: 20201225
  Receipt Date: 20201225
  Transmission Date: 20210114
  Serious: Yes (Other)
  Sender: FDA-Public Use
  Company Number: DE-BIOVITRUM-2020DE7789

PATIENT
  Age: 3 Year
  Sex: Male

DRUGS (1)
  1. ANAKINRA [Suspect]
     Active Substance: ANAKINRA
     Indication: STILL^S DISEASE

REACTIONS (2)
  - Still^s disease [Recovered/Resolved]
  - Condition aggravated [Recovered/Resolved]
